FAERS Safety Report 13376494 (Version 1)
Quarter: 2017Q1

REPORT INFORMATION
  Report Type: Spontaneous
  Country: US (occurrence: US)
  Receive Date: 20170327
  Receipt Date: 20170327
  Transmission Date: 20170429
  Serious: Yes (Hospitalization)
  Sender: FDA-Public Use
  Company Number: None

PATIENT
  Age: 66 Year
  Sex: Male

DRUGS (1)
  1. ROPINIROLE. [Suspect]
     Active Substance: ROPINIROLE
     Dates: start: 20170112, end: 20170209

REACTIONS (1)
  - Hallucination [None]

NARRATIVE: CASE EVENT DATE: 20170109
